FAERS Safety Report 20264868 (Version 4)
Quarter: 2022Q1

REPORT INFORMATION
  Report Type: Report from Study
  Country: JP (occurrence: JP)
  Receive Date: 20211231
  Receipt Date: 20220311
  Transmission Date: 20220423
  Serious: Yes (Other)
  Sender: FDA-Public Use
  Company Number: JP-NOVARTISPH-NVSJ2021JP014257

PATIENT
  Age: 19 Year
  Sex: Male
  Weight: 63.9 kg

DRUGS (11)
  1. TAFINLAR [Suspect]
     Active Substance: DABRAFENIB MESYLATE
     Indication: Undifferentiated sarcoma
     Dosage: 150 MG, BID
     Route: 048
     Dates: start: 20210603, end: 20210606
  2. TAFINLAR [Suspect]
     Active Substance: DABRAFENIB MESYLATE
     Indication: Metastases to lung
     Dosage: 100 MG, BID
     Route: 048
     Dates: start: 20210617
  3. TAFINLAR [Suspect]
     Active Substance: DABRAFENIB MESYLATE
     Indication: Metastases to bone
  4. MEKINIST [Suspect]
     Active Substance: TRAMETINIB DIMETHYL SULFOXIDE
     Indication: Undifferentiated sarcoma
     Dosage: 2 MG, QD
     Route: 048
     Dates: start: 20210603, end: 20210606
  5. MEKINIST [Suspect]
     Active Substance: TRAMETINIB DIMETHYL SULFOXIDE
     Indication: Metastases to lung
     Dosage: 1.5 MG, QD
     Route: 048
     Dates: start: 20210617
  6. MEKINIST [Suspect]
     Active Substance: TRAMETINIB DIMETHYL SULFOXIDE
     Indication: Metastases to bone
  7. IFOSFAMIDE [Suspect]
     Active Substance: IFOSFAMIDE
     Indication: Undifferentiated sarcoma
     Dosage: 3.3 G, QD
     Route: 065
     Dates: start: 20210127, end: 20210131
  8. IFOSFAMIDE [Suspect]
     Active Substance: IFOSFAMIDE
     Indication: Metastases to lung
     Dosage: 3.0 G, QD
     Route: 065
     Dates: start: 20210303, end: 20210307
  9. IFOSFAMIDE [Suspect]
     Active Substance: IFOSFAMIDE
     Indication: Metastases to bone
     Dosage: 2.8 G, QD
     Route: 065
     Dates: start: 20210401, end: 20210405
  10. IFOSFAMIDE [Suspect]
     Active Substance: IFOSFAMIDE
     Dosage: 2.8 G, QD
     Route: 065
     Dates: start: 20210430, end: 20210504
  11. EDOXABAN TOSYLATE [Concomitant]
     Active Substance: EDOXABAN TOSYLATE
     Indication: Product used for unknown indication
     Dosage: UNK
     Route: 048

REACTIONS (18)
  - Cystitis haemorrhagic [Unknown]
  - Haematuria [Recovered/Resolved]
  - Urinary bladder haematoma [Unknown]
  - Fatigue [Recovered/Resolved]
  - Decreased appetite [Recovered/Resolved]
  - Urinary tract infection [Recovered/Resolved]
  - Pyrexia [Recovering/Resolving]
  - Headache [Recovered/Resolved]
  - Neutrophil count decreased [Recovered/Resolved]
  - White blood cell count decreased [Recovered/Resolved]
  - Haematuria [Recovered/Resolved]
  - Influenza like illness [Recovered/Resolved]
  - White blood cell count decreased [Recovered/Resolved]
  - Rash [Recovering/Resolving]
  - White blood cell count decreased [Recovered/Resolved]
  - Urinary tract infection [Recovering/Resolving]
  - Neutrophil count decreased [Recovered/Resolved]
  - White blood cell count decreased [Recovered/Resolved]

NARRATIVE: CASE EVENT DATE: 20210601
